FAERS Safety Report 8837076 (Version 1)
Quarter: 2012Q4

REPORT INFORMATION
  Report Type: 
  Country: MX (occurrence: MX)
  Receive Date: 20121011
  Receipt Date: 20121011
  Transmission Date: 20130627
  Serious: Yes (Other)
  Sender: FDA-Public Use
  Company Number: PHHY2012MX088905

PATIENT
  Sex: Female

DRUGS (5)
  1. CO-DIOVAN [Suspect]
     Indication: HYPERTENSION
     Dosage: 1 DF, daily (160/25 mg)
     Dates: start: 200810, end: 201205
  2. ASPIRIN [Concomitant]
     Indication: CARDIAC DISORDER
     Dosage: 1 DF, daily
  3. SPIRONOLACTONE [Concomitant]
     Indication: CARDIAC DISORDER
     Dosage: 2 DF, daily
     Dates: start: 201205
  4. PLAVIX [Concomitant]
     Indication: CARDIAC DISORDER
     Dosage: 1 DF, daily
     Dates: start: 201205
  5. LIPITOR [Concomitant]
     Indication: LIPIDS ABNORMAL
     Dosage: 1 DF, daily
     Dates: start: 201205

REACTIONS (2)
  - Angina unstable [Not Recovered/Not Resolved]
  - Psychomotor hyperactivity [Not Recovered/Not Resolved]
